FAERS Safety Report 14094834 (Version 6)
Quarter: 2017Q4

REPORT INFORMATION
  Report Type: Report from Study
  Country: GR (occurrence: GR)
  Receive Date: 20171016
  Receipt Date: 20171229
  Transmission Date: 20180321
  Serious: Yes (Other)
  Sender: FDA-Public Use
  Company Number: PHHO2017GR013876

PATIENT
  Age: 65 Year
  Sex: Male
  Weight: 66 kg

DRUGS (14)
  1. GEMCITABINE [Suspect]
     Active Substance: GEMCITABINE\GEMCITABINE HYDROCHLORIDE
     Indication: CHOLANGIOCARCINOMA
     Dosage: 1275 MG, D1,D8 Q3W
     Route: 042
     Dates: start: 20170329, end: 20170906
  2. AMLODIPINE [Concomitant]
     Active Substance: AMLODIPINE BESYLATE
     Indication: HYPERTENSION
     Dosage: 5 MG, QD
     Route: 048
     Dates: start: 20170921, end: 20171019
  3. MODURETIC 5-50 [Concomitant]
     Active Substance: AMILORIDE HYDROCHLORIDE\HYDROCHLOROTHIAZIDE
     Indication: HYPERTENSION
     Dosage: 5+50MG QD
     Route: 048
     Dates: start: 20170921, end: 20170928
  4. LASIX [Concomitant]
     Active Substance: FUROSEMIDE
     Dosage: 20 MG, QD
     Route: 065
     Dates: start: 20171020
  5. PRIMPERAN [Concomitant]
     Active Substance: METOCLOPRAMIDE HYDROCHLORIDE
     Indication: PREMEDICATION
     Dosage: 20 MG, UNK
     Route: 042
     Dates: start: 20170329, end: 20170906
  6. LASIX [Concomitant]
     Active Substance: FUROSEMIDE
     Indication: POLYURIA
     Dosage: 40 MG, Q8H
     Route: 065
     Dates: start: 20170928, end: 20171008
  7. DELTIUS [Concomitant]
     Indication: OSTEOPOROSIS
     Dosage: 25000 IU, Q1W
     Route: 048
     Dates: start: 20170625
  8. IRBEGEN [Concomitant]
     Indication: HYPERTENSION
     Dosage: 300 MG, QD
     Route: 048
     Dates: start: 20160915, end: 20170920
  9. EPREX [Concomitant]
     Active Substance: ERYTHROPOIETIN
     Indication: ANAEMIA
     Dosage: 40000, QW
     Route: 058
     Dates: start: 20171030
  10. PAZOPANIB [Suspect]
     Active Substance: PAZOPANIB
     Indication: CHOLANGIOCARCINOMA
     Dosage: 400 MG, QD
     Route: 048
     Dates: start: 20170329, end: 20170921
  11. FOSAMAX [Concomitant]
     Active Substance: ALENDRONATE SODIUM
     Indication: OSTEOPOROSIS
     Dosage: 70 MG, Q1W
     Route: 048
     Dates: start: 20170625, end: 20170929
  12. PREZOLON [Concomitant]
     Active Substance: PREDNISOLONE
     Indication: POLYARTHRITIS
     Dosage: 5 MG, QD
     Route: 048
     Dates: start: 20170625
  13. LOSEC [Concomitant]
     Active Substance: OMEPRAZOLE
     Indication: GASTRITIS
     Dosage: 20 MG, QD
     Route: 048
     Dates: start: 20170228
  14. AMLODIPINE [Concomitant]
     Active Substance: AMLODIPINE BESYLATE
     Dosage: 10 MG,
     Route: 048
     Dates: start: 20171020

REACTIONS (2)
  - Acute kidney injury [Recovered/Resolved]
  - Hyponatraemia [Recovered/Resolved]

NARRATIVE: CASE EVENT DATE: 20170920
